FAERS Safety Report 25080289 (Version 1)
Quarter: 2025Q1

REPORT INFORMATION
  Report Type: Report from Study
  Country: ZA (occurrence: ZA)
  Receive Date: 20250314
  Receipt Date: 20250314
  Transmission Date: 20250409
  Serious: Yes (Hospitalization)
  Sender: ABBVIE
  Company Number: ZA-ABBVIE-6174789

PATIENT
  Age: 51 Year
  Sex: Female

DRUGS (1)
  1. OZURDEX [Suspect]
     Active Substance: DEXAMETHASONE
     Indication: Malignant neoplasm of choroid
     Route: 050
     Dates: start: 20240530, end: 20241107

REACTIONS (1)
  - Eye excision [Unknown]

NARRATIVE: CASE EVENT DATE: 20250201
